FAERS Safety Report 8495038-1 (Version None)
Quarter: 2012Q3

REPORT INFORMATION
  Report Type: 
  Country: None (occurrence: None)
  Receive Date: 20120702
  Receipt Date: 20120702
  Transmission Date: 20120928
  Serious: Yes (Life-Threatening, Hospitalization)
  Sender: FDA-Public Use
  Company Number: None

PATIENT
  Age: 82 Year
  Sex: Female
  Weight: 81.2 kg

DRUGS (1)
  1. CLOZAPINE [Suspect]
     Dosage: 25MG TAB QHS PO
     Route: 048
     Dates: start: 20120621, end: 20120622

REACTIONS (4)
  - HYPOTHERMIA [None]
  - BRADYCARDIA [None]
  - HYPERKALAEMIA [None]
  - BLOOD CREATININE INCREASED [None]
